FAERS Safety Report 5162332-1 (Version None)
Quarter: 2006Q4

REPORT INFORMATION
  Report Type: 
  Country: None (occurrence: None)
  Receive Date: 20061130
  Receipt Date: 20061124
  Transmission Date: 20070319
  Serious: Yes (Hospitalization)
  Sender: FDA-Public Use
  Company Number: FR-MERCK-0611FRA00065

PATIENT
  Age: 63 Year
  Sex: Male

DRUGS (11)
  1. ZOCOR [Suspect]
     Route: 048
     Dates: end: 20061106
  2. DANTROLENE SODIUM [Suspect]
     Indication: PARAPLEGIA
     Route: 048
     Dates: start: 20060801, end: 20061106
  3. ACETAMINOPHEN [Suspect]
     Route: 048
     Dates: start: 20060817, end: 20061106
  4. PREGABALIN [Suspect]
     Route: 048
     Dates: start: 20060807, end: 20061106
  5. DALTEPARIN SODIUM [Concomitant]
     Indication: PROPHYLAXIS
     Route: 058
     Dates: end: 20061109
  6. MIANSERIN HYDROCHLORIDE [Concomitant]
     Route: 048
  7. ASPIRIN [Concomitant]
     Indication: PROPHYLAXIS
     Route: 048
  8. POLYETHYLENE GLYCOL 4000 [Concomitant]
     Route: 048
  9. CLONAZEPAM [Concomitant]
     Route: 048
     Dates: start: 20060605
  10. TAMSULOSIN HCL [Concomitant]
     Route: 048
     Dates: start: 20060925
  11. SULFAMETHOXAZOLE AND TRIMETHOPRIM [Concomitant]
     Indication: URINARY TRACT INFECTION
     Route: 048
     Dates: start: 20060824, end: 20060831

REACTIONS (4)
  - ALANINE AMINOTRANSFERASE INCREASED [None]
  - ASPARTATE AMINOTRANSFERASE INCREASED [None]
  - NEUTROPENIA [None]
  - PYREXIA [None]
